FAERS Safety Report 26008065 (Version 1)
Quarter: 2025Q4

REPORT INFORMATION
  Report Type: Spontaneous
  Country: US (occurrence: US)
  Receive Date: 20251106
  Receipt Date: 20251106
  Transmission Date: 20260119
  Serious: No
  Sender: SANOFI AVENTIS
  Company Number: US-SA-2025SA323486

PATIENT
  Sex: Female

DRUGS (3)
  1. DUPIXENT [Suspect]
     Active Substance: DUPILUMAB
     Indication: Dermatitis atopic
     Dosage: 200.000MG QOW
     Route: 058
     Dates: start: 20240508
  2. CITRULLINE [Concomitant]
     Active Substance: CITRULLINE
  3. HYDRAZINE SULFATE [Concomitant]
     Active Substance: HYDRAZINE SULFATE

REACTIONS (4)
  - Depression [Unknown]
  - Anxiety [Unknown]
  - Discomfort [Unknown]
  - Rash [Unknown]
